FAERS Safety Report 22117357 (Version 3)
Quarter: 2023Q2

REPORT INFORMATION
  Report Type: Spontaneous
  Country: TH (occurrence: TH)
  Receive Date: 20230320
  Receipt Date: 20230602
  Transmission Date: 20230722
  Serious: Yes (Death, Hospitalization, Other)
  Sender: FDA-Public Use
  Company Number: TH-009507513-2303THA006023

PATIENT
  Age: 54 Year
  Sex: Male

DRUGS (1)
  1. KEYTRUDA [Suspect]
     Active Substance: PEMBROLIZUMAB
     Indication: Gastric cancer
     Dosage: 200 MILLIGRAM, Q3W
     Route: 042
     Dates: start: 20230308, end: 20230308

REACTIONS (5)
  - Death [Fatal]
  - Illness [Not Recovered/Not Resolved]
  - Gait disturbance [Not Recovered/Not Resolved]
  - Drug hypersensitivity [Recovered/Resolved]
  - Asthenia [Not Recovered/Not Resolved]

NARRATIVE: CASE EVENT DATE: 20230301
